FAERS Safety Report 9210982 (Version 1)
Quarter: 2013Q2

REPORT INFORMATION
  Report Type: Spontaneous
  Country: UY (occurrence: UY)
  Receive Date: 20130404
  Receipt Date: 20130404
  Transmission Date: 20140414
  Serious: Yes (Hospitalization)
  Sender: FDA-Public Use
  Company Number: UY-B.I. PHARMACEUTICALS,INC./RIDGEFIELD-2012-RA-00038RA

PATIENT
  Age: 78 Year
  Sex: Female
  Weight: 82 kg

DRUGS (6)
  1. PRADAXA [Suspect]
     Indication: CEREBROVASCULAR ACCIDENT PROPHYLAXIS
     Dosage: 220 MG
     Route: 048
     Dates: start: 201112, end: 20120105
  2. AMIODARONE [Concomitant]
     Indication: ATRIAL FIBRILLATION
     Dosage: 200 MG
     Route: 048
     Dates: start: 2002
  3. ATORVASTATIN [Concomitant]
     Dosage: 20 MG
     Route: 048
  4. CARVEDILOL [Concomitant]
     Indication: EJECTION FRACTION
     Dosage: 6.25 MG
     Route: 048
  5. FRAXIPARINE [Concomitant]
     Indication: CEREBROVASCULAR ACCIDENT PROPHYLAXIS
     Dosage: 40 MG
     Route: 058
     Dates: start: 2012
  6. QUIMIOFLEX [Concomitant]
     Indication: MYALGIA
     Route: 048
     Dates: end: 20120116

REACTIONS (3)
  - Metrorrhagia [Unknown]
  - Thrombocytopenia [Unknown]
  - Metrorrhagia [Recovered/Resolved]
